FAERS Safety Report 4339475-5 (Version None)
Quarter: 2004Q2

REPORT INFORMATION
  Report Type: 
  Country: None (occurrence: None)
  Receive Date: 20040412
  Receipt Date: 20040402
  Transmission Date: 20050107
  Serious: Yes (Hospitalization, Other)
  Sender: FDA-Public Use
  Company Number: 2004203563CA

PATIENT
  Age: 53 Year
  Sex: Male

DRUGS (6)
  1. ADRIAMYCIN PFS [Suspect]
     Indication: HODGKIN'S DISEASE
     Dosage: IV
     Route: 042
     Dates: start: 19890301
  2. RADIATION TREATMENT (RADIATION TREATMENT) [Suspect]
     Dates: start: 19850501
  3. ASPIRIN [Concomitant]
  4. CALCIUM [Concomitant]
  5. BETA BLOCKING AGENTS [Concomitant]
  6. ACE INHIBITOR NOS [Concomitant]

REACTIONS (6)
  - ATRIOVENTRICULAR BLOCK SECOND DEGREE [None]
  - CARDIAC ARREST [None]
  - CARDIOMYOPATHY [None]
  - DIZZINESS [None]
  - DYSPNOEA [None]
  - VENTRICULAR DYSFUNCTION [None]
